FAERS Safety Report 6572505-9 (Version None)
Quarter: 2010Q1

REPORT INFORMATION
  Report Type: 
  Country: None (occurrence: None)
  Receive Date: 20100205
  Receipt Date: 20100128
  Transmission Date: 20100710
  Serious: Yes (Hospitalization)
  Sender: FDA-Public Use
  Company Number: US-ASTRAZENECA-2010SE03914

PATIENT
  Age: 75 Year
  Sex: Female
  Weight: 73.9 kg

DRUGS (4)
  1. NEXIUM [Suspect]
     Route: 048
  2. PRILOSEC [Suspect]
     Indication: GASTROOESOPHAGEAL REFLUX DISEASE
     Route: 048
     Dates: start: 19950101
  3. LYRICA [Concomitant]
     Indication: LIMB INJURY
  4. LEVADOPA [Concomitant]
     Indication: LIMB INJURY

REACTIONS (2)
  - DRUG INEFFECTIVE [None]
  - PNEUMONIA [None]
